FAERS Safety Report 6240825-3 (Version None)
Quarter: 2009Q2

REPORT INFORMATION
  Report Type: 
  Country: None (occurrence: None)
  Receive Date: 20090619
  Receipt Date: 20090615
  Transmission Date: 20091009
  Serious: Yes (Hospitalization)
  Sender: FDA-Public Use
  Company Number: 1000006867

PATIENT
  Age: 97 Year
  Sex: Female

DRUGS (2)
  1. NAMENDA [Suspect]
     Indication: DEMENTIA
  2. ARICEPT [Suspect]
     Indication: DEMENTIA

REACTIONS (2)
  - CONDITION AGGRAVATED [None]
  - DEMENTIA [None]
